FAERS Safety Report 4534111-7 (Version None)
Quarter: 2004Q4

REPORT INFORMATION
  Report Type: 
  Country: None (occurrence: None)
  Receive Date: 20041214
  Receipt Date: 20040827
  Transmission Date: 20050328
  Serious: No
  Sender: FDA-Public Use
  Company Number: USA040876666

PATIENT
  Sex: Male

DRUGS (5)
  1. CIALIS [Suspect]
     Dosage: 20 MG
  2. ANDROGEL [Concomitant]
  3. NIACIN [Concomitant]
  4. TYLENOL    /USA/(PARACETAMOL) [Concomitant]
  5. MULTIVITAMIN [Concomitant]

REACTIONS (3)
  - ANXIETY [None]
  - NERVOUSNESS [None]
  - PANIC ATTACK [None]
